FAERS Safety Report 6063787-0 (Version None)
Quarter: 2009Q1

REPORT INFORMATION
  Report Type: 
  Country: None (occurrence: None)
  Receive Date: 20090204
  Receipt Date: 20090128
  Transmission Date: 20090719
  Serious: Yes (Other)
  Sender: FDA-Public Use
  Company Number: US-JNJFOC-20090107384

PATIENT
  Sex: Female

DRUGS (17)
  1. EXTRA STRENGTH TYLENOL [Suspect]
     Route: 048
  2. EXTRA STRENGTH TYLENOL [Suspect]
     Indication: ARTHRITIS
     Route: 048
  3. IMDUR [Concomitant]
     Indication: HYPERTENSION
  4. IMDUR [Concomitant]
     Indication: CARDIAC FAILURE CONGESTIVE
  5. DILTIAZEM [Concomitant]
     Indication: HYPERTENSION
  6. DILTIAZEM [Concomitant]
     Indication: CARDIAC FAILURE CONGESTIVE
  7. ATIVAN [Concomitant]
     Indication: CONVULSION
  8. NITROGLYCERIN [Concomitant]
     Indication: CHEST PAIN
     Route: 060
  9. AMARYL [Concomitant]
     Indication: TYPE 2 DIABETES MELLITUS
  10. METFORMIN HCL [Concomitant]
     Indication: TYPE 2 DIABETES MELLITUS
  11. FISH OIL [Concomitant]
     Indication: CARDIAC DISORDER
  12. PLAVIX [Concomitant]
     Indication: THROMBOSIS PROPHYLAXIS
  13. PLAVIX [Concomitant]
     Indication: CARDIAC FAILURE CONGESTIVE
  14. ASPIRIN [Concomitant]
     Indication: CARDIAC FAILURE CONGESTIVE
  15. ALTACE [Concomitant]
     Indication: CARDIAC FAILURE CONGESTIVE
  16. ALTACE [Concomitant]
     Indication: HYPERTENSION
  17. LASIX [Concomitant]
     Indication: CARDIAC FAILURE CONGESTIVE

REACTIONS (1)
  - CONVULSIVE THRESHOLD LOWERED [None]
